FAERS Safety Report 22247834 (Version 4)
Quarter: 2023Q2

REPORT INFORMATION
  Report Type: Spontaneous
  Country: US (occurrence: US)
  Receive Date: 20230425
  Receipt Date: 20230613
  Transmission Date: 20230722
  Serious: No
  Sender: FDA-Public Use
  Company Number: US-GSKCCFUS-Case-01682475_AE-94926

PATIENT
  Sex: Female

DRUGS (1)
  1. ANORO ELLIPTA [Suspect]
     Active Substance: UMECLIDINIUM BROMIDE\VILANTEROL TRIFENATATE
     Indication: Product used for unknown indication
     Dosage: 42 UG, QD,(62.5/25)
     Route: 055

REACTIONS (5)
  - Nausea [Unknown]
  - Taste disorder [Unknown]
  - Retching [Unknown]
  - Product dose omission issue [Unknown]
  - Product complaint [Unknown]
